FAERS Safety Report 9426625 (Version 1)
Quarter: 2013Q3

REPORT INFORMATION
  Report Type: Spontaneous
  Country: US (occurrence: US)
  Receive Date: 20130730
  Receipt Date: 20130730
  Transmission Date: 20140515
  Serious: Yes (Other)
  Sender: FDA-Public Use
  Company Number: US-ASTRAZENECA-2013SE56061

PATIENT
  Age: 89 Year
  Sex: Female
  Weight: 52.2 kg

DRUGS (5)
  1. NEXIUM [Suspect]
     Indication: GASTROOESOPHAGEAL REFLUX DISEASE
     Dosage: QD
     Route: 048
     Dates: start: 201212, end: 201301
  2. PRILOSEC OTC [Suspect]
     Indication: GASTROOESOPHAGEAL REFLUX DISEASE
     Route: 048
     Dates: start: 201301
  3. SALMON OIL [Concomitant]
     Indication: SUPPLEMENTATION THERAPY
     Route: 048
  4. ASPIRIN [Concomitant]
     Route: 048
  5. MULTIVITAMIN [Concomitant]
     Indication: SUPPLEMENTATION THERAPY
     Route: 048

REACTIONS (6)
  - Pharyngeal haemorrhage [Unknown]
  - Macular degeneration [Not Recovered/Not Resolved]
  - Gastrooesophageal reflux disease [Not Recovered/Not Resolved]
  - Hypoacusis [Unknown]
  - Drug ineffective [Not Recovered/Not Resolved]
  - Intentional drug misuse [Not Recovered/Not Resolved]
